FAERS Safety Report 23955847 (Version 1)
Quarter: 2024Q2

REPORT INFORMATION
  Report Type: Spontaneous
  Country: US (occurrence: None)
  Receive Date: 20240607
  Receipt Date: 20240607
  Transmission Date: 20240716
  Serious: No
  Sender: FDA-Public Use
  Company Number: None

PATIENT
  Age: 53 Year
  Sex: Female

DRUGS (20)
  1. AMBRISENTAN [Suspect]
     Active Substance: AMBRISENTAN
     Indication: Pulmonary hypertension
     Dosage: FREQUENCY : DAILY;?
     Route: 048
     Dates: start: 20230605
  2. AJOVY [Concomitant]
     Active Substance: FREMANEZUMAB-VFRM
  3. EFFEXOR [Concomitant]
     Active Substance: VENLAFAXINE HYDROCHLORIDE
  4. balsalazine [Concomitant]
  5. UPTRAVI [Concomitant]
     Active Substance: SELEXIPAG
  6. PROZAC [Concomitant]
     Active Substance: FLUOXETINE HYDROCHLORIDE
  7. slidenafil [Concomitant]
  8. DILTIAZEM [Concomitant]
  9. albuterol [Concomitant]
  10. bero ellipta [Concomitant]
  11. NORTRIPTYLINE [Concomitant]
  12. TOPAMAX [Concomitant]
     Active Substance: TOPIRAMATE
  13. PROTONIX [Concomitant]
     Active Substance: PANTOPRAZOLE SODIUM
  14. lyruca [Concomitant]
  15. lsaix [Concomitant]
  16. XANAX [Concomitant]
     Active Substance: ALPRAZOLAM
  17. POTASSIUM [Concomitant]
  18. LORAZEPAM [Concomitant]
  19. ZANAFLEX [Concomitant]
     Active Substance: TIZANIDINE HYDROCHLORIDE
  20. TADALAFIL [Concomitant]

REACTIONS (1)
  - Swelling [None]

NARRATIVE: CASE EVENT DATE: 20240607
